FAERS Safety Report 9515299 (Version 1)
Quarter: 2013Q1

REPORT INFORMATION
  Report Type: Spontaneous
  Country: US (occurrence: None)
  Receive Date: 20130305
  Receipt Date: 20130305
  Transmission Date: 20140127
  Serious: Yes (Disabling, Other)
  Sender: FDA-Public Use
  Company Number: 163-21880-12042930

PATIENT
  Age: 79 Year
  Sex: Female

DRUGS (7)
  1. REVLIMID (LENALIDOMIDE) (25 MILLIGRAM, CAPSULES) [Suspect]
     Indication: PLASMA CELL MYELOMA
     Dosage: 25 MG, 1 IN 1 D, PO
     Route: 048
     Dates: start: 20100420
  2. ZOMETA (ZOLEDRONIC ACID) (UNKNOWN) [Concomitant]
  3. CE NTRUM (CENTRUM) (UNKNOWN) [Concomitant]
  4. TRAMADOL (TRAMADOL) (UNKNOWN) [Concomitant]
  5. CLARITIN (LORATADINE) (UNKNOWN) [Concomitant]
  6. CALCIUM WITH VITAMIN D (CALCIUM WITH VITAMIN D) (UNKNOWN) [Concomitant]
  7. METFORMIN (METFORMIN) (UNKNOWN) [Concomitant]

REACTIONS (3)
  - Local swelling [None]
  - Diarrhoea [None]
  - Fatigue [None]
